FAERS Safety Report 9257804 (Version 1)
Quarter: 2013Q1

REPORT INFORMATION
  Report Type: Spontaneous
  Country: US (occurrence: None)
  Receive Date: 20121212
  Receipt Date: 20121212
  Transmission Date: 20140127
  Serious: No
  Sender: FDA-Public Use
  Company Number: 1208USA009845

PATIENT
  Age: 49 Year
  Sex: Male

DRUGS (3)
  1. PEGINTRON [Suspect]
     Indication: HEPATITIS C
     Route: 058
     Dates: start: 20120818
  2. VICTRELIS [Suspect]
     Indication: HEPATITIS C
     Route: 048
     Dates: start: 2012
  3. RIBASPHERE (RIBAVIRIN) [Suspect]
     Indication: HEPATITIS C
     Route: 048
     Dates: start: 20120818

REACTIONS (7)
  - Thirst [None]
  - Hyperhidrosis [None]
  - Hot flush [None]
  - Myalgia [None]
  - Arthralgia [None]
  - Chills [None]
  - Pyrexia [None]
